FAERS Safety Report 7738630-1 (Version None)
Quarter: 2011Q3

REPORT INFORMATION
  Report Type: 
  Country: None (occurrence: None)
  Receive Date: 20110908
  Receipt Date: 20110830
  Transmission Date: 20111222
  Serious: Yes (Hospitalization, Other)
  Sender: FDA-Public Use
  Company Number: US-ASTRAZENECA-2010SE50846

PATIENT
  Age: 70 Year
  Sex: Female

DRUGS (1)
  1. NEXIUM [Suspect]
     Route: 048

REACTIONS (8)
  - MULTIPLE SCLEROSIS [None]
  - OESOPHAGEAL PAIN [None]
  - PHARYNGITIS [None]
  - DRUG DOSE OMISSION [None]
  - MALAISE [None]
  - HIATUS HERNIA [None]
  - GRAND MAL CONVULSION [None]
  - UPPER RESPIRATORY TRACT INFECTION [None]
